FAERS Safety Report 9183357 (Version 1)
Quarter: 2013Q1

REPORT INFORMATION
  Report Type: Spontaneous
  Country: GB (occurrence: GB)
  Receive Date: 20130322
  Receipt Date: 20130322
  Transmission Date: 20140127
  Serious: Yes (Other)
  Sender: FDA-Public Use
  Company Number: GB-MERCK-1303GBR009029

PATIENT
  Age: 33 Year
  Sex: Female
  Weight: 71.66 kg

DRUGS (10)
  1. REMERON [Suspect]
     Indication: ANXIETY
     Dosage: 45 MG, UNK
     Route: 048
     Dates: start: 20120408, end: 20130221
  2. REMERON [Suspect]
     Indication: DEPRESSION
  3. REMERON [Suspect]
     Indication: PANIC ATTACK
  4. BUSCOPAN [Concomitant]
  5. CLONAZEPAM [Concomitant]
  6. CODEINE [Concomitant]
  7. MEFENAMIC ACID [Concomitant]
  8. PROMETHAZINE HYDROCHLORIDE [Concomitant]
  9. SEROQUEL XL [Concomitant]
  10. ZOPICLONE [Concomitant]

REACTIONS (4)
  - Bipolar I disorder [Recovering/Resolving]
  - Mood swings [Recovering/Resolving]
  - Suicidal ideation [Recovering/Resolving]
  - Withdrawal syndrome [Recovering/Resolving]
